FAERS Safety Report 8113463-5 (Version None)
Quarter: 2012Q1

REPORT INFORMATION
  Report Type: 
  Country: None (occurrence: None)
  Receive Date: 20120203
  Receipt Date: 20120201
  Transmission Date: 20120608
  Serious: Yes (Death)
  Sender: FDA-Public Use
  Company Number: ZW-ABBOTT-12P-190-0900032-00

PATIENT
  Age: 37 Year
  Sex: Female
  Weight: 60.1 kg

DRUGS (8)
  1. STAVUDINE [Concomitant]
     Indication: ANTIRETROVIRAL THERAPY
     Dates: start: 20080201, end: 20120104
  2. FLUCONAZOLE [Concomitant]
     Indication: CRYPTOCOCCOSIS
  3. LAMIVUDINE [Concomitant]
     Indication: ANTIRETROVIRAL THERAPY
     Dates: start: 20080201, end: 20120104
  4. FLUCONAZOLE [Concomitant]
     Indication: PROPHYLAXIS
  5. EMTRICITABINE/TENOFOVIR DISOPROXIL FUMARATE [Concomitant]
     Indication: HIV INFECTION
     Dosage: 200/300MG ONCE DAILY
     Route: 048
     Dates: start: 20110609, end: 20111225
  6. KALETRA [Suspect]
     Indication: HIV INFECTION
     Dosage: 400/100MG TWICE DAILY
     Route: 048
     Dates: start: 20110609, end: 20111225
  7. NEVIRAPINE [Concomitant]
     Indication: ANTIRETROVIRAL THERAPY
     Dates: start: 20080201, end: 20120104
  8. CARBAMAZEPINE [Concomitant]
     Indication: NEUROPATHY PERIPHERAL
     Dates: start: 20100901, end: 20111212

REACTIONS (1)
  - RENAL FAILURE [None]
